FAERS Safety Report 15250420 (Version 2)
Quarter: 2018Q3

REPORT INFORMATION
  Report Type: Spontaneous
  Country: US (occurrence: US)
  Receive Date: 20180807
  Receipt Date: 20180824
  Transmission Date: 20181010
  Serious: Yes (Other)
  Sender: FDA-Public Use
  Company Number: US-AMGEN-USASP2018105804

PATIENT
  Age: 86 Year
  Sex: Female
  Weight: 47.17 kg

DRUGS (20)
  1. PROLIA [Suspect]
     Active Substance: DENOSUMAB
     Indication: OSTEOPOROSIS POSTMENOPAUSAL
     Dosage: 60 MG, Q6MO
     Route: 065
     Dates: start: 20170123
  2. ADVIL [Concomitant]
     Active Substance: IBUPROFEN
     Dosage: UNK (1 DAY), AS NECESSARY
     Route: 048
  3. IRON [Concomitant]
     Active Substance: IRON
     Dosage: 142 MG, QWK
  4. DELSYM [Concomitant]
     Active Substance: DEXTROMETHORPHAN
     Dosage: UNK
  5. ROSUVASTATIN. [Concomitant]
     Active Substance: ROSUVASTATIN
     Dosage: UNK
  6. VITAMIN D3 [Concomitant]
     Active Substance: CHOLECALCIFEROL
     Dosage: UNK
  7. CALCIUM [Concomitant]
     Active Substance: CALCIUM
     Dosage: 1250 MG, QD
  8. TUMS [Concomitant]
     Active Substance: CALCIUM CARBONATE
     Dosage: 500 MG, QD
  9. CLINPRO 5000 [Concomitant]
     Active Substance: SODIUM FLUORIDE
     Dosage: UNK
  10. CRESTOR [Concomitant]
     Active Substance: ROSUVASTATIN CALCIUM
     Dosage: 5 MG, QD (IN THE EVENING)
     Route: 048
  11. VITAMIN D [Concomitant]
     Active Substance: CHOLECALCIFEROL
     Dosage: 1000 IU, QD
     Route: 048
  12. BENZONATATE. [Concomitant]
     Active Substance: BENZONATATE
     Indication: COUGH
     Dosage: 1?2 CAPSULES (100 MG/CAPSULE), (EVERY 8 HOURS)AS NECESSARY
     Route: 048
  13. ASPIRIN. [Concomitant]
     Active Substance: ASPIRIN
     Dosage: 81 MG, QD
     Route: 048
  14. TYLENOL EXTRA STRENGTH [Concomitant]
     Active Substance: ACETAMINOPHEN
     Dosage: (1 TABLET IN MORNING AND 1 IN EVINING), AS NECESSARY
  15. VITAMIN B12 [Concomitant]
     Active Substance: CYANOCOBALAMIN
     Dosage: 500 MUG, QD
     Route: 048
  16. OCEAN NASAL [Concomitant]
     Dosage: UNK (0.65%)
     Route: 045
  17. FLUTICASONE PROPIONATE. [Concomitant]
     Active Substance: FLUTICASONE PROPIONATE
     Dosage: 50 MUG, QD (2 SPRAYS EACH NOSTRIL)
     Route: 045
  18. LEVOXYL [Concomitant]
     Active Substance: LEVOTHYROXINE SODIUM
     Dosage: 75 MUG, QD
     Route: 048
  19. STOOL SOFTENER (DOCUSATE) [Concomitant]
     Active Substance: DOCUSATE
     Dosage: 100 MG, AS NECESSARY
     Route: 048
  20. LORATADINE. [Concomitant]
     Active Substance: LORATADINE
     Dosage: 10 MG, QD
     Route: 048

REACTIONS (8)
  - Pruritus generalised [Unknown]
  - Joint swelling [Unknown]
  - Tooth extraction [Unknown]
  - Fall [Unknown]
  - Arthralgia [Unknown]
  - Inguinal hernia [Unknown]
  - Stress fracture [Not Recovered/Not Resolved]
  - Joint stiffness [Unknown]

NARRATIVE: CASE EVENT DATE: 201704
